FAERS Safety Report 8417458-3 (Version None)
Quarter: 2012Q2

REPORT INFORMATION
  Report Type: 
  Country: None (occurrence: None)
  Receive Date: 20120606
  Receipt Date: 20110126
  Transmission Date: 20120825
  Serious: Yes (Other)
  Sender: FDA-Public Use
  Company Number: PHHY2011US116644

PATIENT
  Age: 28 Year
  Sex: Female

DRUGS (7)
  1. SULFAMETHOXAZOLE AND TRIMETHOPRIM [Suspect]
     Dosage: 550 MG, UNK
     Route: 042
  2. SIROLIMUS [Concomitant]
     Indication: GRAFT VERSUS HOST DISEASE
  3. METHYLPREDNISOLONE [Concomitant]
     Indication: PNEUMONIA
  4. TACROLIMUS [Concomitant]
     Indication: GRAFT VERSUS HOST DISEASE
  5. SULFAMETHOXAZOLE AND TRIMETHOPRIM [Suspect]
     Indication: PNEUMONIA
     Dosage: 20 MG/KG, UNK
     Route: 042
  6. VANCOMYCIN [Concomitant]
     Indication: PNEUMONIA
  7. PIPERACILLIN/TAZOBACTAM [Concomitant]
     Indication: PNEUMONIA

REACTIONS (9)
  - FUNGAL SKIN INFECTION [None]
  - METABOLIC ACIDOSIS [None]
  - HYPOTENSION [None]
  - SYSTEMIC INFLAMMATORY RESPONSE SYNDROME [None]
  - RESPIRATORY ACIDOSIS [None]
  - MULTI-ORGAN FAILURE [None]
  - PULMONARY SEPSIS [None]
  - RENAL FAILURE ACUTE [None]
  - RHABDOMYOLYSIS [None]
